FAERS Safety Report 23554886 (Version 1)
Quarter: 2024Q1

REPORT INFORMATION
  Report Type: Spontaneous
  Country: US (occurrence: None)
  Receive Date: 20240222
  Receipt Date: 20240222
  Transmission Date: 20240409
  Serious: No
  Sender: FDA-Public Use
  Company Number: None

PATIENT
  Age: 61 Year
  Sex: Female
  Weight: 71.21 kg

DRUGS (6)
  1. SIMPONI [Suspect]
     Active Substance: GOLIMUMAB
     Indication: Rheumatoid arthritis
     Dosage: FREQUENCY : MONTHLY;?
     Route: 048
     Dates: start: 202207
  2. SIMPONI [Suspect]
     Active Substance: GOLIMUMAB
     Indication: Rheumatoid factor positive
  3. SIMPONI [Suspect]
     Active Substance: GOLIMUMAB
     Indication: Polyarthritis
  4. SIMPONI [Suspect]
     Active Substance: GOLIMUMAB
     Indication: Nausea
  5. SIMPONI [Suspect]
     Active Substance: GOLIMUMAB
     Indication: Vomiting
  6. SIMPONI [Suspect]
     Active Substance: GOLIMUMAB
     Indication: Senile osteoporosis

REACTIONS (2)
  - Illness [None]
  - Therapy interrupted [None]
